FAERS Safety Report 4330570-3 (Version None)
Quarter: 2004Q1

REPORT INFORMATION
  Report Type: 
  Country: None (occurrence: None)
  Receive Date: 20040329
  Receipt Date: 20040317
  Transmission Date: 20041129
  Serious: Yes (Hospitalization, Other)
  Sender: FDA-Public Use
  Company Number: HQWYE965718MAR04

PATIENT
  Age: 23 Year
  Sex: Female
  Weight: 49.94 kg

DRUGS (4)
  1. ALESSE-28 (LEVONORGESTREL/ETINYL ESTRADIOL/INERT, TABLET) [Suspect]
     Indication: CONTRACEPTION
     Dosage: 1 TABLET DAILY, ORAL
     Route: 048
     Dates: start: 19970101
  2. AUGMENTIN '500' [Suspect]
     Indication: SINUSITIS
     Dosage: 500MG DAILY, ORAL
     Route: 048
     Dates: start: 20040101
  3. CIPRO [Suspect]
     Indication: SINUSITIS
     Dosage: INTRAVENOUS
     Route: 042
     Dates: start: 20040101, end: 20040101
  4. MIDOL [Concomitant]

REACTIONS (12)
  - ABDOMINAL PAIN [None]
  - ABORTION INDUCED [None]
  - BREAST PAIN [None]
  - COMPLICATIONS OF MATERNAL EXPOSURE TO THERAPEUTIC DRUGS [None]
  - DRUG INEFFECTIVE [None]
  - DRUG INTERACTION [None]
  - HOT FLUSH [None]
  - MATERNAL DRUGS AFFECTING FOETUS [None]
  - METRORRHAGIA [None]
  - PREGNANCY ON ORAL CONTRACEPTIVE [None]
  - SINUSITIS [None]
  - UNINTENDED PREGNANCY [None]
